FAERS Safety Report 5501520-9 (Version None)
Quarter: 2007Q4

REPORT INFORMATION
  Report Type: 
  Country: None (occurrence: None)
  Receive Date: 20071030
  Receipt Date: 20071024
  Transmission Date: 20080405
  Serious: Yes (Other)
  Sender: FDA-Public Use
  Company Number: PHNU2007DE03545

PATIENT
  Sex: Male

DRUGS (2)
  1. AREDIA [Suspect]
     Indication: PLASMACYTOMA
     Dosage: 90 MG, QMO
     Route: 042
     Dates: start: 19980101
  2. ZOMETA [Suspect]
     Indication: PLASMACYTOMA
     Dosage: 4 MG, QMO
     Route: 042

REACTIONS (9)
  - GASTROINTESTINAL TUBE INSERTION [None]
  - GENERAL ANAESTHESIA [None]
  - JAW DISORDER [None]
  - JAW OPERATION [None]
  - OSTEONECROSIS [None]
  - PAIN IN JAW [None]
  - PLASTIC SURGERY [None]
  - SINUSITIS [None]
  - TOOTH EXTRACTION [None]
